FAERS Safety Report 13813300 (Version 2)
Quarter: 2017Q3

REPORT INFORMATION
  Report Type: Spontaneous
  Country: US (occurrence: US)
  Receive Date: 20170731
  Receipt Date: 20170905
  Transmission Date: 20171127
  Serious: Yes (Hospitalization, Other)
  Sender: FDA-Public Use
  Company Number: US-BRISTOL-MYERS SQUIBB COMPANY-BMS-2017-064338

PATIENT
  Sex: Female
  Weight: 160 kg

DRUGS (4)
  1. BYSTOLIC [Concomitant]
     Active Substance: NEBIVOLOL HYDROCHLORIDE
     Indication: PRODUCT USED FOR UNKNOWN INDICATION
     Route: 065
  2. WARFARIN [Interacting]
     Active Substance: WARFARIN
     Indication: PRODUCT USED FOR UNKNOWN INDICATION
     Route: 065
  3. COUMADIN [Suspect]
     Active Substance: WARFARIN SODIUM
     Indication: ATRIAL FIBRILLATION
     Dosage: UNK
     Route: 048
     Dates: start: 2002
  4. PRAVASTATIN. [Concomitant]
     Active Substance: PRAVASTATIN
     Indication: PRODUCT USED FOR UNKNOWN INDICATION
     Route: 065

REACTIONS (14)
  - Haematemesis [Unknown]
  - Drug dispensing error [Unknown]
  - Brain operation [Unknown]
  - Malaise [Unknown]
  - Expired product administered [Unknown]
  - Haemoptysis [Unknown]
  - Cerebral haemorrhage [Unknown]
  - Dyspnoea [Unknown]
  - International normalised ratio increased [Unknown]
  - Drug interaction [Unknown]
  - Epistaxis [Recovered/Resolved]
  - Cautery to nose [Unknown]
  - Mouth haemorrhage [Unknown]
  - Rectal haemorrhage [Unknown]
